FAERS Safety Report 18854871 (Version 1)
Quarter: 2021Q1

REPORT INFORMATION
  Report Type: Report from Study
  Country: RU (occurrence: RU)
  Receive Date: 20210205
  Receipt Date: 20210205
  Transmission Date: 20210420
  Serious: Yes (Death, Hospitalization)
  Sender: FDA-Public Use
  Company Number: RU-JNJFOC-A-CH2017-161160

PATIENT
  Age: 48 Year
  Sex: Male
  Weight: 85 kg

DRUGS (13)
  1. TORASEMID [Concomitant]
     Active Substance: TORSEMIDE
     Indication: CARDIAC FAILURE
     Dosage: UNK
     Dates: start: 20171031
  2. LASIX [Concomitant]
     Active Substance: FUROSEMIDE
     Dosage: UNK
     Dates: start: 20171101
  3. SILDENAFIL. [Concomitant]
     Active Substance: SILDENAFIL
     Indication: PULMONARY HYPERTENSION
     Dosage: UNK
     Dates: start: 20170124
  4. SPIRONOLACTONE. [Concomitant]
     Active Substance: SPIRONOLACTONE
     Indication: CARDIAC FAILURE
     Dosage: 50 MG, OD
     Route: 048
     Dates: start: 20171020
  5. WARFARIN [Concomitant]
     Active Substance: WARFARIN
     Indication: THROMBOSIS PROPHYLAXIS
     Dosage: UNK
     Dates: start: 20171028
  6. WARFARIN [Concomitant]
     Active Substance: WARFARIN
     Dosage: 5 MG, OD
     Route: 048
     Dates: start: 20150514
  7. OMEPRAZOL [Concomitant]
     Active Substance: OMEPRAZOLE
     Indication: OESOPHAGITIS
     Dosage: 1 CAP
     Route: 048
     Dates: start: 20180614
  8. HYPOTHIAZID [Concomitant]
     Active Substance: HYDROCHLOROTHIAZIDE
     Dosage: UNK
     Dates: start: 20180614
  9. TORASEMID [Concomitant]
     Active Substance: TORSEMIDE
     Dosage: 10 MG, OD
     Route: 048
     Dates: start: 20180614
  10. VEROSPIRONE [Concomitant]
     Active Substance: SPIRONOLACTONE
     Dosage: UNK
     Dates: start: 20171016
  11. MACITENTAN [Suspect]
     Active Substance: MACITENTAN
     Indication: PULMONARY HYPERTENSION
     Dosage: 10 MG, QD
     Route: 048
     Dates: start: 20160425, end: 201807
  12. DIACARB [Concomitant]
     Active Substance: ACETAZOLAMIDE
     Dosage: UNK
     Dates: start: 20171017
  13. SILDENAFIL. [Concomitant]
     Active Substance: SILDENAFIL
     Dosage: 20 MG, TID
     Route: 048
     Dates: start: 20150724

REACTIONS (5)
  - Hepatic cirrhosis [Not Recovered/Not Resolved]
  - Cardiac failure [Fatal]
  - Aspiration pleural cavity [Unknown]
  - Bile duct stone [Unknown]
  - Pulmonary hypertension [Recovered/Resolved]

NARRATIVE: CASE EVENT DATE: 20170123
